FAERS Safety Report 8793755 (Version 2)
Quarter: 2012Q4

REPORT INFORMATION
  Report Type: 
  Country: US (occurrence: US)
  Receive Date: 20120917
  Receipt Date: 20120925
  Transmission Date: 20130627
  Serious: No
  Sender: FDA-Public Use
  Company Number: US-VERTEX PHARMACEUTICAL INC.-AE-2012-008881

PATIENT
  Sex: Male
  Weight: 103 kg

DRUGS (6)
  1. VX-950 [Suspect]
     Indication: HEPATITIS C
     Dosage: 750 mg, tid
     Route: 048
     Dates: start: 20120605
  2. RIBASPHERE [Concomitant]
     Indication: HEPATITIS C
     Dosage: 1000 mg, qd
     Route: 048
     Dates: start: 20120605
  3. PEGINTRON                          /01543001/ [Concomitant]
     Indication: HEPATITIS C
     Dosage: 150 ?g, UNK
     Route: 058
     Dates: start: 20120605
  4. PEGINTRON                          /01543001/ [Concomitant]
     Dosage: 120 ?g, UNK
     Route: 058
  5. VITAMIN D /00107901/ [Concomitant]
     Dosage: 1 DF, qd
     Route: 048
  6. B COMPLEX PLUS C [Concomitant]
     Dosage: 1 DF, qd
     Route: 048

REACTIONS (13)
  - Pneumonia [Unknown]
  - Influenza like illness [Unknown]
  - Headache [Unknown]
  - Pyrexia [Unknown]
  - Injection site rash [Unknown]
  - Pain of skin [None]
  - Chills [Unknown]
  - Dry mouth [Unknown]
  - Rash generalised [Unknown]
  - Rash erythematous [Unknown]
  - Haemorrhoidal haemorrhage [Unknown]
  - Nausea [Unknown]
  - Pruritus [Unknown]
